FAERS Safety Report 24841837 (Version 1)
Quarter: 2025Q1

REPORT INFORMATION
  Report Type: Spontaneous
  Country: US (occurrence: US)
  Receive Date: 20250114
  Receipt Date: 20250114
  Transmission Date: 20250409
  Serious: Yes (Life-Threatening, Hospitalization)
  Sender: AMGEN
  Company Number: US-AMGEN-USASP2025002894

PATIENT
  Age: 34 Year
  Sex: Female

DRUGS (7)
  1. RITUXIMAB [Suspect]
     Active Substance: RITUXIMAB
     Indication: Antisynthetase syndrome
     Route: 040
  2. RITUXIMAB [Suspect]
     Active Substance: RITUXIMAB
     Route: 040
  3. RITUXIMAB [Suspect]
     Active Substance: RITUXIMAB
     Dosage: UNK UNK, Q4MO
     Route: 040
  4. PREDNISONE [Suspect]
     Active Substance: PREDNISONE
     Indication: Antisynthetase syndrome
     Route: 065
  5. METHYLPREDNISOLONE [Concomitant]
     Active Substance: METHYLPREDNISOLONE
     Indication: Antisynthetase syndrome
     Dosage: 1 GRAM, QD
     Route: 040
  6. Immunoglobulin [Concomitant]
     Indication: Antisynthetase syndrome
     Dosage: 1 GRAM PER KILOGRAM, QD
     Route: 040
  7. Immunoglobulin [Concomitant]
     Dosage: UNK UNK, QMO
     Route: 040

REACTIONS (4)
  - Respiratory failure [Unknown]
  - Interstitial lung disease [Unknown]
  - Tinea faciei [Recovered/Resolved]
  - Off label use [Unknown]
